FAERS Safety Report 8475824-4 (Version None)
Quarter: 2012Q2

REPORT INFORMATION
  Report Type: 
  Country: None (occurrence: None)
  Receive Date: 20120402
  Receipt Date: 20120119
  Transmission Date: 20120825
  Serious: Yes (Other)
  Sender: FDA-Public Use
  Company Number: 317660USA

PATIENT
  Sex: Female

DRUGS (5)
  1. ALENDRONATE SODIUM [Suspect]
     Indication: OSTEOPOROSIS
  2. TRAMADOL HYDROCHLORIDE [Concomitant]
  3. ALBUTEROL SULATE [Concomitant]
  4. FEXOFENADINE [Concomitant]
  5. NAPROXEN [Concomitant]

REACTIONS (2)
  - STOMATITIS [None]
  - BONE LOSS [None]
